FAERS Safety Report 5989410-9 (Version None)
Quarter: 2008Q4

REPORT INFORMATION
  Report Type: 
  Country: None (occurrence: None)
  Receive Date: 20081210
  Receipt Date: 20081128
  Transmission Date: 20090506
  Serious: Yes (Other)
  Sender: FDA-Public Use
  Company Number: SE-ROCHE-599939

PATIENT
  Sex: Male

DRUGS (6)
  1. PEG-INTERFERON ALFA 2A (RO 25-8310) [Suspect]
     Indication: HEPATITIS C
     Route: 058
     Dates: start: 20080312, end: 20081024
  2. RIBAVIRIN [Concomitant]
     Indication: HEPATITIS C
  3. NEORECORMON [Concomitant]
  4. TAMBOCOR [Concomitant]
     Dosage: DOSAGE: 1X2.
     Dates: start: 20040101
  5. SELOKEN [Concomitant]
     Dosage: DOSAGE: 1X1. DRUG: SELOKEN ZOC.
     Dates: start: 20040101
  6. ENALAPRIL MALEATE [Concomitant]
     Dosage: DOSE: 1X1
     Dates: start: 20050101

REACTIONS (3)
  - CORNEAL DISORDER [None]
  - PHOTOPHOBIA [None]
  - VISUAL IMPAIRMENT [None]
